FAERS Safety Report 10964237 (Version 2)
Quarter: 2017Q3

REPORT INFORMATION
  Report Type: Report from Study
  Country: MY (occurrence: MY)
  Receive Date: 20150329
  Receipt Date: 20170821
  Transmission Date: 20171127
  Serious: Yes (Death, Other)
  Sender: FDA-Public Use
  Company Number: PHHY2015MY035852

PATIENT
  Sex: Male

DRUGS (4)
  1. MEROPENEM. [Concomitant]
     Active Substance: MEROPENEM
     Indication: FEBRILE NEUTROPENIA
     Dosage: 2 G, TID
     Route: 065
  2. DEXAMETHASONE. [Concomitant]
     Active Substance: DEXAMETHASONE
     Indication: CHRONIC MYELOID LEUKAEMIA
     Route: 065
  3. TASIGNA [Suspect]
     Active Substance: NILOTINIB
     Indication: CHRONIC MYELOID LEUKAEMIA
     Dosage: 400 MG, BID
     Route: 065
     Dates: start: 20140318, end: 20150225
  4. CLOXACILLIN [Concomitant]
     Active Substance: CLOXACILLIN
     Indication: FEBRILE NEUTROPENIA
     Dosage: 1 G, QID
     Route: 065

REACTIONS (2)
  - Haemorrhage intracranial [Fatal]
  - Chronic myeloid leukaemia transformation [Unknown]
